FAERS Safety Report 22629866 (Version 7)
Quarter: 2024Q2

REPORT INFORMATION
  Report Type: Spontaneous
  Country: US (occurrence: US)
  Receive Date: 20230622
  Receipt Date: 20240508
  Transmission Date: 20240715
  Serious: Yes (Other)
  Sender: FDA-Public Use
  Company Number: US-XERIS PHARMACEUTICALS-2023XER01941

PATIENT
  Sex: Female
  Weight: 134.24 kg

DRUGS (15)
  1. RECORLEV [Suspect]
     Active Substance: LEVOKETOCONAZOLE
     Indication: Cushing^s syndrome
     Dosage: 1 TABLET (150 MG), 2X/DAY
     Route: 048
     Dates: start: 20230608
  2. RECORLEV [Suspect]
     Active Substance: LEVOKETOCONAZOLE
     Dosage: 1 TABLET (150 MG), 2X/DAY
     Route: 048
     Dates: end: 202401
  3. RECORLEV [Suspect]
     Active Substance: LEVOKETOCONAZOLE
     Dosage: 2 TABLETS (300 MG), 2X/DAY
     Route: 048
     Dates: start: 20240131
  4. OZEMPIC [Concomitant]
     Active Substance: SEMAGLUTIDE
  5. JARDIANCE [Concomitant]
     Active Substance: EMPAGLIFLOZIN
  6. METFORMIN [Concomitant]
     Active Substance: METFORMIN HYDROCHLORIDE
  7. GLIPIZIDE [Concomitant]
     Active Substance: GLIPIZIDE
  8. ROSUVASTATIN [Concomitant]
     Active Substance: ROSUVASTATIN
  9. HUMULIN R [Concomitant]
     Active Substance: INSULIN HUMAN
     Dosage: ADJUSTED DOSE
  10. IMODIUM [Concomitant]
     Active Substance: LOPERAMIDE HYDROCHLORIDE
  11. ALEVE [Concomitant]
     Active Substance: NAPROXEN SODIUM
  12. TYLENOL [Concomitant]
     Active Substance: ACETAMINOPHEN
  13. LASIX [Concomitant]
     Active Substance: FUROSEMIDE
  14. UNSPECIFIED INGREDIENT [Concomitant]
     Active Substance: UNSPECIFIED INGREDIENT
  15. GLIMEPIRIDE [Concomitant]
     Active Substance: GLIMEPIRIDE

REACTIONS (14)
  - Glaucoma [Unknown]
  - Ocular hypertension [Unknown]
  - Gastrointestinal disorder [Unknown]
  - Therapeutic response unexpected [Not Recovered/Not Resolved]
  - Swelling [Recovering/Resolving]
  - Pain [Recovering/Resolving]
  - Diarrhoea [Not Recovered/Not Resolved]
  - Headache [Recovering/Resolving]
  - Sleep disorder [Not Recovered/Not Resolved]
  - Insomnia [Not Recovered/Not Resolved]
  - Nausea [Recovering/Resolving]
  - Fatigue [Recovering/Resolving]
  - Vomiting [Recovered/Resolved]
  - Dry mouth [Unknown]

NARRATIVE: CASE EVENT DATE: 20230101
